FAERS Safety Report 4743558-5 (Version None)
Quarter: 2005Q3

REPORT INFORMATION
  Report Type: 
  Country: None (occurrence: None)
  Receive Date: 20050809
  Receipt Date: 20050728
  Transmission Date: 20060218
  Serious: Yes (Other)
  Sender: FDA-Public Use
  Company Number: 2005107795

PATIENT
  Age: 73 Year
  Sex: Female

DRUGS (6)
  1. ZITHROMAX [Suspect]
     Indication: SINUSITIS
     Dosage: 500 MG, INTRAVENOUS
     Route: 042
     Dates: start: 20050330
  2. DIGOXIN [Concomitant]
  3. COUMADIN [Concomitant]
  4. SPIRINOLACTONE (ALDACTONE) (SPIRONOLACTONE) [Concomitant]
  5. ENALAPRIL MALEATE (VASOTEC) (ENALAPRIL MALEATE) [Concomitant]
  6. METOPROLOL TARTRATE [Concomitant]

REACTIONS (3)
  - ANAPHYLACTIC SHOCK [None]
  - PULSE ABSENT [None]
  - RESPIRATORY ARREST [None]
